FAERS Safety Report 10260629 (Version 1)
Quarter: 2014Q2

REPORT INFORMATION
  Report Type: Spontaneous
  Country: ES (occurrence: ES)
  Receive Date: 20140626
  Receipt Date: 20140626
  Transmission Date: 20141212
  Serious: Yes (Death, Hospitalization, Other)
  Sender: FDA-Public Use
  Company Number: ES-009507513-1406ESP009327

PATIENT
  Age: 58 Year
  Sex: Female

DRUGS (4)
  1. RIBAVIRIN [Suspect]
     Indication: HEPATITIS C
     Dosage: STRENGTH 800MG, TOTAL DAILY DOSE: 800 MG DAILY
     Route: 048
     Dates: start: 20131030, end: 201401
  2. RIBAVIRIN [Suspect]
     Dosage: STRENGTH 400 MG DAILY
     Route: 048
     Dates: start: 201401, end: 20140419
  3. VICTRELIS [Suspect]
     Indication: HEPATITIS C
     Dosage: STRENGTH 200MG, 4 CAPSULES/TID
     Route: 048
     Dates: start: 20131127, end: 20140419
  4. PEGASYS [Suspect]
     Indication: HEPATITIS C
     Dosage: STRENGTH 180 MCG, WEEKLY
     Route: 058
     Dates: start: 20131030, end: 20140419

REACTIONS (14)
  - Neutropenia [Fatal]
  - Leukopenia [Fatal]
  - Septic shock [Fatal]
  - Bronchopneumonia [Fatal]
  - Rhabdomyolysis [Fatal]
  - Renal failure [Fatal]
  - Metabolic acidosis [Fatal]
  - Coagulopathy [Fatal]
  - Neutrophil count decreased [Fatal]
  - Endotracheal intubation [Unknown]
  - Arthralgia [Unknown]
  - Catarrh [Unknown]
  - Haemodialysis [Unknown]
  - Drug ineffective [Unknown]
